FAERS Safety Report 9146801 (Version 1)
Quarter: 2013Q1

REPORT INFORMATION
  Report Type: Spontaneous
  Country: RO (occurrence: RO)
  Receive Date: 20130307
  Receipt Date: 20130307
  Transmission Date: 20140127
  Serious: Yes (Hospitalization)
  Sender: FDA-Public Use
  Company Number: RO-009507513-1302ROM011390

PATIENT
  Age: 68 Year
  Sex: Female

DRUGS (7)
  1. SIMVASTATIN [Suspect]
     Indication: TYPE V HYPERLIPIDAEMIA
     Dosage: 20 MG, QD
     Route: 048
     Dates: start: 200907
  2. FENOFIBRATE [Interacting]
     Indication: TYPE V HYPERLIPIDAEMIA
     Dosage: 1 DF, QD
     Route: 048
     Dates: start: 200907, end: 20101029
  3. RAMIPRIL [Concomitant]
     Indication: HYPERTENSION
     Dosage: 1 DF, QD
     Dates: start: 200907
  4. ISOSORBIDE MONONITRATE [Concomitant]
     Indication: ANGINA PECTORIS
     Dosage: 1 DF, QD
     Dates: start: 200907
  5. METOPROLOL [Concomitant]
     Indication: HYPERTENSION
     Dosage: 1 DF, QD
     Dates: start: 200907
  6. INDAPAMIDE [Concomitant]
     Indication: HYPERTENSION
     Dosage: 1 DF, QD
     Dates: start: 200907
  7. ASPIRIN [Concomitant]
     Indication: ANGINA PECTORIS
     Dosage: 1 DF, QD
     Dates: start: 200907

REACTIONS (4)
  - Chest pain [Recovering/Resolving]
  - Myalgia [Recovering/Resolving]
  - Asthenia [Recovering/Resolving]
  - Drug interaction [Unknown]
